FAERS Safety Report 6192216-1 (Version None)
Quarter: 2009Q2

REPORT INFORMATION
  Report Type: 
  Country: None (occurrence: None)
  Receive Date: 20090515
  Receipt Date: 20090504
  Transmission Date: 20091009
  Serious: Yes (Other)
  Sender: FDA-Public Use
  Company Number: DE-JNJCH-2009012927

PATIENT
  Sex: Female

DRUGS (3)
  1. CETIRIZINE HYDROCHLORIDE [Suspect]
     Indication: DRUG USE FOR UNKNOWN INDICATION
     Dosage: TEXT:NI
     Route: 065
  2. LORATADINE [Suspect]
     Indication: DRUG USE FOR UNKNOWN INDICATION
     Dosage: TEXT:NI
     Route: 065
  3. CONTRACEPTIVE, UNSPECIFIED [Suspect]
     Indication: CONTRACEPTION
     Dosage: TEXT:NI
     Route: 065

REACTIONS (2)
  - PREGNANCY ON CONTRACEPTIVE [None]
  - UNINTENDED PREGNANCY [None]
